FAERS Safety Report 17562411 (Version 1)
Quarter: 2020Q1

REPORT INFORMATION
  Report Type: Spontaneous
  Country: GR (occurrence: GR)
  Receive Date: 20200319
  Receipt Date: 20200319
  Transmission Date: 20200409
  Serious: Yes (Death, Other)
  Sender: FDA-Public Use
  Company Number: GR-AMGEN-GRCSP2020042125

PATIENT

DRUGS (17)
  1. XGEVA [Suspect]
     Active Substance: DENOSUMAB
     Indication: METASTASES TO BONE
     Dosage: UNK
     Route: 065
  2. METRONIDAZOLE. [Concomitant]
     Active Substance: METRONIDAZOLE
     Dosage: 500 MILLIGRAM, TID
  3. GEFITINIB. [Concomitant]
     Active Substance: GEFITINIB
  4. GEMCITABINE. [Concomitant]
     Active Substance: GEMCITABINE
  5. CAPECITABINE. [Concomitant]
     Active Substance: CAPECITABINE
  6. TRASTUZUMAB. [Suspect]
     Active Substance: TRASTUZUMAB
     Indication: NEOPLASM MALIGNANT
     Dosage: UNK
     Route: 065
  7. CABAZITAXEL [Concomitant]
     Active Substance: CABAZITAXEL
  8. VINORELBINE [Concomitant]
     Active Substance: VINORELBINE TARTRATE
  9. CYCLOPHOSPHAMIDE. [Concomitant]
     Active Substance: CYCLOPHOSPHAMIDE
  10. PACLITAXEL. [Concomitant]
     Active Substance: PACLITAXEL
  11. ERLOTINIB [Concomitant]
     Active Substance: ERLOTINIB
  12. EVEROLIMUS. [Concomitant]
     Active Substance: EVEROLIMUS
  13. AMOXICILLIN. [Concomitant]
     Active Substance: AMOXICILLIN
     Dosage: 500 MILLIGRAM, TID
  14. DOCETAXEL. [Concomitant]
     Active Substance: DOCETAXEL
  15. LENALIDOMIDE [Concomitant]
     Active Substance: LENALIDOMIDE
  16. BEVACIZUMAB. [Suspect]
     Active Substance: BEVACIZUMAB
     Indication: NEOPLASM MALIGNANT
     Dosage: UNK
     Route: 065
  17. BORTEZOMIB. [Concomitant]
     Active Substance: BORTEZOMIB

REACTIONS (11)
  - Dental caries [Unknown]
  - Osteonecrosis of jaw [Unknown]
  - Dental fistula [Unknown]
  - Hypoaesthesia [Unknown]
  - Pain in jaw [Unknown]
  - Loose tooth [Unknown]
  - Swelling [Unknown]
  - Purulence [Unknown]
  - Death [Fatal]
  - Tooth disorder [Unknown]
  - Tooth fracture [Unknown]
